FAERS Safety Report 4554569-7 (Version None)
Quarter: 2005Q1

REPORT INFORMATION
  Report Type: 
  Country: None (occurrence: None)
  Receive Date: 20050118
  Receipt Date: 20050106
  Transmission Date: 20050727
  Serious: Yes (Other)
  Sender: FDA-Public Use
  Company Number: PHEH2005US00580

PATIENT
  Age: 58 Year
  Sex: Male

DRUGS (3)
  1. NEORAL [Suspect]
     Indication: HEART TRANSPLANT
     Dosage: 275 MG AM AND 250 MG PM
     Route: 048
  2. VALCYTE [Concomitant]
  3. CELLCEPT [Concomitant]

REACTIONS (4)
  - ASTHENIA [None]
  - DEMYELINATION [None]
  - MUSCULOSKELETAL STIFFNESS [None]
  - NEUROPATHY PERIPHERAL [None]
